FAERS Safety Report 7094794-7 (Version None)
Quarter: 2010Q4

REPORT INFORMATION
  Report Type: 
  Country: None (occurrence: None)
  Receive Date: 20101110
  Receipt Date: 20101029
  Transmission Date: 20110411
  Serious: Yes (Life-Threatening)
  Sender: FDA-Public Use
  Company Number: IT-AMGEN-ITASP2010001940

PATIENT

DRUGS (2)
  1. VECTIBIX [Suspect]
     Indication: COLON CANCER
     Dosage: 372 MG, Q2WK
     Route: 042
     Dates: start: 20100920, end: 20101019
  2. ANTINEOPLASTIC AGENTS [Concomitant]

REACTIONS (3)
  - BRONCHOSPASM [None]
  - CHILLS [None]
  - HYPERTENSION [None]
